FAERS Safety Report 12235400 (Version 1)
Quarter: 2016Q2

REPORT INFORMATION
  Report Type: Spontaneous
  Country: DE (occurrence: DE)
  Receive Date: 20160404
  Receipt Date: 20160404
  Transmission Date: 20160815
  Serious: Yes (Other)
  Sender: FDA-Public Use
  Company Number: DE-ENDO PHARMACEUTICALS INC.-2016-002234

PATIENT
  Age: 52 Year
  Sex: Male
  Weight: 80 kg

DRUGS (2)
  1. AVEED [Suspect]
     Active Substance: TESTOSTERONE UNDECANOATE
     Indication: TRANSGENDER HORMONAL THERAPY
     Route: 030
     Dates: start: 20160322
  2. AVEED [Suspect]
     Active Substance: TESTOSTERONE UNDECANOATE
     Dosage: EVERY 12 WEEKS FOR SEVERAL YEARS
     Route: 065

REACTIONS (2)
  - Pulmonary oil microembolism [Unknown]
  - Off label use [Unknown]

NARRATIVE: CASE EVENT DATE: 201603
